FAERS Safety Report 14631919 (Version 11)
Quarter: 2019Q3

REPORT INFORMATION
  Report Type: Spontaneous
  Country: CA (occurrence: CA)
  Receive Date: 20180313
  Receipt Date: 20190806
  Transmission Date: 20191004
  Serious: Yes (Other)
  Sender: FDA-Public Use
  Company Number: CA-CELLTRION INC.-2018CA018066

PATIENT

DRUGS (12)
  1. INFLECTRA [Suspect]
     Active Substance: INFLIXIMAB-DYYB
     Dosage: 770 MG, 0, 2, WEEKS, THEN EVERY 8 WEEKS
     Route: 042
     Dates: start: 20180307
  2. INFLECTRA [Suspect]
     Active Substance: INFLIXIMAB-DYYB
     Dosage: 770 MG, 0, 2, WEEKS, THEN EVERY 8 WEEKS
     Route: 042
     Dates: start: 20180530, end: 20180530
  3. INFLECTRA [Suspect]
     Active Substance: INFLIXIMAB-DYYB
     Dosage: 387 MG, EVERY 8 WEEKS
     Route: 042
     Dates: start: 20180725, end: 20180725
  4. INFLECTRA [Suspect]
     Active Substance: INFLIXIMAB-DYYB
     Dosage: 387 MG, EVERY 8 WEEKS
     Route: 042
     Dates: start: 20180920
  5. ACETAMINOPHEN. [Concomitant]
     Active Substance: ACETAMINOPHEN
     Indication: PREMEDICATION
     Dosage: 650 MG, UNK
     Route: 048
     Dates: start: 20180725
  6. INFLECTRA [Suspect]
     Active Substance: INFLIXIMAB-DYYB
     Indication: CROHN^S DISEASE
     Dosage: 770 MG, 0, 2, WEEKS, THEN EVERY 8 WEEKS
     Route: 042
     Dates: start: 20180221
  7. INFLECTRA [Suspect]
     Active Substance: INFLIXIMAB-DYYB
     Dosage: 770 MG, 0, 2, WEEKS, THEN EVERY 8 WEEKS
     Route: 042
     Dates: start: 20180404
  8. INFLECTRA [Suspect]
     Active Substance: INFLIXIMAB-DYYB
     Dosage: 387 MG, EVERY 8 WEEKS
     Route: 042
     Dates: start: 20181121
  9. INFLECTRA [Suspect]
     Active Substance: INFLIXIMAB-DYYB
     Dosage: 387 MG, EVERY 8 WEEKS
     Route: 042
     Dates: start: 20190529, end: 20190529
  10. INFLECTRA [Suspect]
     Active Substance: INFLIXIMAB-DYYB
     Dosage: 387 MG, EVERY 8 WEEKS
     Route: 042
     Dates: start: 20190206
  11. IMURAN [Concomitant]
     Active Substance: AZATHIOPRINE
     Dosage: UNK
     Dates: start: 201701
  12. ACETAMINOPHEN. [Concomitant]
     Active Substance: ACETAMINOPHEN
     Dosage: 1000 MG, UNK
     Route: 048
     Dates: start: 20190529, end: 20190529

REACTIONS (12)
  - Fall [Unknown]
  - Vertigo [Not Recovered/Not Resolved]
  - Ligament sprain [Unknown]
  - Concussion [Unknown]
  - Weight fluctuation [Unknown]
  - Condition aggravated [Recovered/Resolved]
  - Tonsillar disorder [Unknown]
  - Off label use [Unknown]
  - Nausea [Unknown]
  - Heart rate irregular [Unknown]
  - Inappropriate schedule of product administration [Unknown]
  - Intentional product use issue [Unknown]

NARRATIVE: CASE EVENT DATE: 20180221
